FAERS Safety Report 4912042-8 (Version None)
Quarter: 2006Q1

REPORT INFORMATION
  Report Type: 
  Country: None (occurrence: None)
  Receive Date: 20060213
  Receipt Date: 20060203
  Transmission Date: 20060701
  Serious: Yes (Other)
  Sender: FDA-Public Use
  Company Number: 200610517GDS

PATIENT
  Age: 88 Year
  Sex: Female

DRUGS (10)
  1. CIPRO [Suspect]
     Dosage: 250 MG, BID, ORAL
     Route: 048
  2. ACETAMINOPHEN [Concomitant]
  3. AMLODIPINE [Concomitant]
  4. DIDROCAL [Concomitant]
  5. DOMPERIDONE [Concomitant]
  6. FUROSEMIDE [Concomitant]
  7. HUMULIN 70/30 [Concomitant]
  8. LANSOPRAZOLE [Concomitant]
  9. POTASSIUM CHLORIDE [Concomitant]
  10. PREDNISONE [Concomitant]

REACTIONS (3)
  - BLOOD CREATININE INCREASED [None]
  - CONVULSION [None]
  - HYPOGLYCAEMIA [None]
